FAERS Safety Report 6705271-4 (Version None)
Quarter: 2010Q2

REPORT INFORMATION
  Report Type: 
  Country: None (occurrence: None)
  Receive Date: 20100430
  Receipt Date: 20100420
  Transmission Date: 20101027
  Serious: Yes (Hospitalization)
  Sender: FDA-Public Use
  Company Number: JP-ROCHE-597910

PATIENT
  Sex: Female

DRUGS (19)
  1. TOCILIZUMAB [Suspect]
     Indication: JUVENILE ARTHRITIS
     Route: 041
     Dates: start: 20080710, end: 20080710
  2. TOCILIZUMAB [Suspect]
     Dosage: DOSE INCREASED.
     Route: 041
     Dates: start: 20080731, end: 20080731
  3. TOCILIZUMAB [Suspect]
     Dosage: DOSE INCREASED
     Route: 041
     Dates: start: 20080821, end: 20080821
  4. TOCILIZUMAB [Suspect]
     Route: 041
     Dates: start: 20080911
  5. PREDNISOLONE [Suspect]
     Indication: JUVENILE ARTHRITIS
     Dosage: DOSE FORM: PERORAL AGENT
     Route: 048
     Dates: start: 20080713, end: 20080716
  6. PREDNISOLONE [Suspect]
     Route: 048
     Dates: start: 20080720, end: 20080802
  7. PREDNISOLONE [Suspect]
     Route: 048
     Dates: start: 20080803, end: 20080816
  8. PREDNISOLONE [Suspect]
     Route: 048
     Dates: start: 20080817, end: 20080910
  9. PREDNISOLONE [Suspect]
     Route: 048
     Dates: start: 20080911, end: 20081022
  10. PREDNISOLONE [Suspect]
     Route: 048
     Dates: start: 20081023, end: 20090112
  11. PREDNISOLONE [Suspect]
     Route: 048
     Dates: start: 20090113, end: 20090222
  12. PREDNISOLONE [Suspect]
     Route: 048
     Dates: start: 20090223, end: 20090405
  13. PREDNISOLONE [Suspect]
     Route: 048
     Dates: start: 20090406, end: 20090517
  14. PREDNISOLONE [Suspect]
     Route: 048
     Dates: start: 20090518, end: 20090628
  15. PREDNISOLONE [Suspect]
     Route: 048
     Dates: start: 20090629
  16. PRIDOL [Suspect]
     Indication: JUVENILE ARTHRITIS
     Route: 041
     Dates: start: 20080710, end: 20080712
  17. PRIDOL [Suspect]
     Route: 041
     Dates: start: 20080717, end: 20080719
  18. NEORAL [Concomitant]
     Route: 048
     Dates: end: 20090405
  19. NEORAL [Concomitant]
     Route: 048
     Dates: start: 20090406

REACTIONS (7)
  - ACNE [None]
  - DUODENAL ULCER [None]
  - GINGIVITIS [None]
  - HYPERTENSION [None]
  - INFLUENZA [None]
  - PANCREATITIS ACUTE [None]
  - UPPER RESPIRATORY TRACT INFLAMMATION [None]
